FAERS Safety Report 18767910 (Version 1)
Quarter: 2021Q1

REPORT INFORMATION
  Report Type: Spontaneous
  Country: US (occurrence: US)
  Receive Date: 20210121
  Receipt Date: 20210121
  Transmission Date: 20210419
  Serious: Yes (Hospitalization, Other)
  Sender: FDA-Public Use
  Company Number: US-JNJFOC-20210131120

PATIENT
  Age: 70 Year
  Sex: Male

DRUGS (1)
  1. INVOKANA [Suspect]
     Active Substance: CANAGLIFLOZIN
     Indication: PRODUCT USED FOR UNKNOWN INDICATION
     Route: 048
     Dates: start: 20150613

REACTIONS (3)
  - Toe amputation [Unknown]
  - Cellulitis [Unknown]
  - Osteomyelitis [Recovered/Resolved]

NARRATIVE: CASE EVENT DATE: 201612
